FAERS Safety Report 23191221 (Version 1)
Quarter: 2023Q4

REPORT INFORMATION
  Report Type: Spontaneous
  Country: US (occurrence: None)
  Receive Date: 20231114
  Receipt Date: 20231114
  Transmission Date: 20240110
  Serious: No
  Sender: FDA-Public Use
  Company Number: None

PATIENT
  Sex: Male

DRUGS (1)
  1. REMICADE [Suspect]
     Active Substance: INFLIXIMAB
     Indication: Rheumatoid arthritis
     Dosage: 300MG EVERY 8 WEEK INTRAVENOUSLY?
     Route: 042
     Dates: start: 202205

REACTIONS (3)
  - Back pain [None]
  - Arthralgia [None]
  - Drug ineffective [None]
